FAERS Safety Report 6798363-5 (Version None)
Quarter: 2010Q2

REPORT INFORMATION
  Report Type: 
  Country: None (occurrence: None)
  Receive Date: 20100622
  Receipt Date: 20100608
  Transmission Date: 20101027
  Serious: Yes (Death, Hospitalization)
  Sender: FDA-Public Use
  Company Number: KV201000130

PATIENT
  Age: 70 Year
  Sex: Female
  Weight: 84.1 kg

DRUGS (19)
  1. MORPHINE SULFATE [Suspect]
     Indication: PAIN
     Dosage: 15 MG, 1-2 TABLETS Q4H PRN, ORAL
     Route: 048
     Dates: start: 20080118, end: 20080101
  2. ALTACE [Concomitant]
  3. NEXIUM [Concomitant]
  4. NITROSTAT [Concomitant]
  5. HUMALIN (INSULIN) [Concomitant]
  6. COREG [Concomitant]
  7. PRAVACHOL [Concomitant]
  8. PLAVIX [Concomitant]
  9. LEVOXYL [Concomitant]
  10. TYLENOL /00020001/ (PARACETAMOL) [Concomitant]
  11. NARVAC INJECTABLE [Concomitant]
  12. ASPIRIN [Concomitant]
  13. LASIX [Concomitant]
  14. SPIRONOLACTONE [Concomitant]
  15. BETAPACE [Concomitant]
  16. LORAZEPAM [Concomitant]
  17. 5-FU /00098801/ (FLUOROURACIL) [Concomitant]
  18. LEUCOVORIN /00566701/ (FOLINIC ACID) [Concomitant]
  19. ALOXI [Concomitant]

REACTIONS (21)
  - ASTHENIA [None]
  - COLON CANCER [None]
  - DECREASED APPETITE [None]
  - DEHYDRATION [None]
  - DIARRHOEA [None]
  - ENTEROCOLITIS [None]
  - FATIGUE [None]
  - HEADACHE [None]
  - INCORRECT DOSE ADMINISTERED [None]
  - NAUSEA [None]
  - NEUTROPENIA [None]
  - OEDEMA PERIPHERAL [None]
  - OESOPHAGITIS [None]
  - ORAL CANDIDIASIS [None]
  - PNEUMONIA [None]
  - RENAL FAILURE ACUTE [None]
  - RESPIRATORY RATE DECREASED [None]
  - SOMNOLENCE [None]
  - THROMBOCYTOPENIA [None]
  - URINARY TRACT INFECTION [None]
  - VOMITING [None]
